FAERS Safety Report 20801287 (Version 5)
Quarter: 2022Q3

REPORT INFORMATION
  Report Type: Report from Study
  Country: JP (occurrence: JP)
  Receive Date: 20220509
  Receipt Date: 20220707
  Transmission Date: 20221027
  Serious: Yes (Hospitalization)
  Sender: FDA-Public Use
  Company Number: JP-CHUGAI-2022016463

PATIENT
  Age: 3 Year
  Sex: Male
  Weight: 16.6 kg

DRUGS (11)
  1. ALECTINIB [Suspect]
     Active Substance: ALECTINIB
     Indication: Malignant glioma
     Dosage: 150 MILLIGRAM, QD
     Route: 048
     Dates: start: 20211109, end: 20211109
  2. ALECTINIB [Suspect]
     Active Substance: ALECTINIB
     Dosage: 300 MILLIGRAM, BID
     Route: 048
     Dates: start: 20211112, end: 20220503
  3. ALECTINIB [Suspect]
     Active Substance: ALECTINIB
     Dosage: 300 MILLIGRAM, QD
     Route: 048
     Dates: start: 20220317, end: 20220418
  4. ALECTINIB [Suspect]
     Active Substance: ALECTINIB
     Dosage: 300 MILLIGRAM, QD
     Route: 048
     Dates: start: 20220424, end: 20220426
  5. ALECTINIB [Suspect]
     Active Substance: ALECTINIB
     Dosage: 300 MILLIGRAM, QD
     Route: 048
     Dates: start: 20220428
  6. LEVETIRACETAM [Concomitant]
     Active Substance: LEVETIRACETAM
     Indication: Seizure prophylaxis
     Route: 048
     Dates: start: 20211212
  7. ALLEGRA [Concomitant]
     Active Substance: FEXOFENADINE HYDROCHLORIDE
     Indication: Rhinitis allergic
     Route: 048
     Dates: start: 20220329
  8. CARBOCYSTEINE [Concomitant]
     Active Substance: CARBOCYSTEINE
     Indication: Upper respiratory tract inflammation
     Route: 048
     Dates: start: 20220412
  9. ASVERIN (TIPEPIDINE HIBENZATE) [Concomitant]
     Active Substance: TIPEPIDINE HIBENZATE
     Indication: Upper respiratory tract inflammation
     Route: 048
     Dates: start: 20220412
  10. HERBALS [Concomitant]
     Active Substance: HERBALS
     Indication: Haematoma
     Route: 048
  11. TOSUFLOXACIN TOSYLATE [Concomitant]
     Active Substance: TOSUFLOXACIN TOSYLATE
     Route: 048
     Dates: start: 20220413

REACTIONS (1)
  - Upper respiratory tract infection [Recovered/Resolved]

NARRATIVE: CASE EVENT DATE: 20220425
